FAERS Safety Report 4721262-7 (Version None)
Quarter: 2005Q3

REPORT INFORMATION
  Report Type: 
  Country: None (occurrence: None)
  Receive Date: 20050720
  Receipt Date: 20050707
  Transmission Date: 20060218
  Serious: No
  Sender: FDA-Public Use
  Company Number: 2005FR-00115

PATIENT
  Age: 27 Year
  Sex: Female
  Weight: 58 kg

DRUGS (15)
  1. RANITIDINE [Suspect]
     Indication: PREMEDICATION
     Dosage: 300 MG, ORAL
     Route: 048
  2. REMIFENTANIL [Concomitant]
  3. ISOFLURANE [Concomitant]
  4. CEFUROXIME METOCLOPRAMIDE [Concomitant]
  5. NITROUS OXIDE [Concomitant]
  6. DICLOFENAC SODIUM [Concomitant]
  7. OXYTOCIN SUXAMETHONIUM [Concomitant]
  8. OXYGEN [Concomitant]
  9. ACETAMINOPHEN [Concomitant]
  10. GENTAMICIN [Concomitant]
  11. SODIUM CITRATE [Concomitant]
  12. VECURONIUM BROMIDE [Concomitant]
  13. NEOSTIGMINE ETOMIDATE [Concomitant]
  14. MORPHINE [Concomitant]
  15. GLYCOPYRRONIUM BROMIDE [Concomitant]

REACTIONS (2)
  - CAESAREAN SECTION [None]
  - HAEMORRHAGE [None]
